FAERS Safety Report 16509045 (Version 1)
Quarter: 2019Q3

REPORT INFORMATION
  Report Type: Report from Study
  Country: US (occurrence: US)
  Receive Date: 20190702
  Receipt Date: 20190702
  Transmission Date: 20191004
  Serious: Yes (Hospitalization)
  Sender: FDA-Public Use
  Company Number: US-BRISTOL-MYERS SQUIBB COMPANY-BMS-2019-062570

PATIENT
  Age: 50 Year
  Sex: Male
  Weight: 64.5 kg

DRUGS (1)
  1. NIVOLUMAB [Suspect]
     Active Substance: NIVOLUMAB
     Indication: LEUKOPLAKIA ORAL
     Dosage: 480 MILLIGRAM, Q4WK
     Route: 042
     Dates: start: 20190604

REACTIONS (2)
  - Troponin increased [Unknown]
  - Chest pain [Unknown]

NARRATIVE: CASE EVENT DATE: 20190622
